FAERS Safety Report 6623762-1 (Version None)
Quarter: 2010Q1

REPORT INFORMATION
  Report Type: 
  Country: None (occurrence: None)
  Receive Date: 20100310
  Receipt Date: 20091119
  Transmission Date: 20100710
  Serious: No
  Sender: FDA-Public Use
  Company Number: US-BIOGENIDEC-2009BI037658

PATIENT
  Sex: Female

DRUGS (2)
  1. AVONEX [Suspect]
     Indication: MULTIPLE SCLEROSIS
     Route: 030
     Dates: start: 19970101, end: 20050101
  2. AVONEX [Suspect]
     Route: 030
     Dates: start: 20050101

REACTIONS (3)
  - HYPOAESTHESIA [None]
  - INJECTION SITE ATROPHY [None]
  - PARAESTHESIA [None]
